FAERS Safety Report 7753128-2 (Version None)
Quarter: 2011Q3

REPORT INFORMATION
  Report Type: 
  Country: None (occurrence: None)
  Receive Date: 20110915
  Receipt Date: 20110912
  Transmission Date: 20111222
  Serious: Yes (Other)
  Sender: FDA-Public Use
  Company Number: US-PFIZER INC-2011147858

PATIENT
  Sex: Male

DRUGS (20)
  1. CEPHALEXIN [Concomitant]
     Indication: KERATOSIS FOLLICULAR
     Dosage: UNK
     Dates: start: 20050101, end: 20090101
  2. VISTARIL [Concomitant]
     Indication: PRURITUS
     Dosage: UNK
     Dates: start: 19900101
  3. NEURONTIN [Concomitant]
     Indication: TREMOR
     Dosage: UNK
     Dates: start: 20010101
  4. GABAPENTIN [Concomitant]
     Indication: PAIN
     Dosage: UNK
     Dates: start: 20050101, end: 20090101
  5. VALTREX [Concomitant]
     Indication: HERPES VIRUS INFECTION
     Dosage: UNK
     Dates: start: 20060101
  6. LEVAQUIN [Concomitant]
     Indication: SKIN INFECTION
     Dosage: UNK
     Dates: start: 20060101, end: 20080101
  7. METHADONE [Concomitant]
     Indication: CELLULITIS
     Dosage: UNK
     Dates: start: 20060101, end: 20090101
  8. METHADONE [Concomitant]
     Indication: PAIN
  9. HYDROXYZINE [Concomitant]
     Indication: KERATOSIS FOLLICULAR
     Dosage: UNK
     Dates: start: 20050101, end: 20090101
  10. HYDROCODONE [Concomitant]
     Indication: HEADACHE
  11. HYDROCODONE [Concomitant]
     Indication: PAIN
     Dosage: UNK
     Dates: start: 20050101, end: 20090101
  12. EFUDEX [Concomitant]
     Indication: SKIN CANCER
     Dosage: UNK
     Dates: start: 20060101, end: 20090101
  13. SULFAMETHOXAZOLE AND TRIMETHOPRIM [Concomitant]
     Indication: INFECTION
     Dosage: UNK
     Dates: start: 20060101, end: 20090101
  14. BETAMETHASONE DIPROPIONATE [Concomitant]
     Indication: KERATOSIS FOLLICULAR
     Dosage: UNK
     Dates: start: 19950101
  15. CLOBETASOL [Concomitant]
     Indication: SKIN DISORDER
     Dosage: UNK
     Dates: start: 20050101, end: 20080101
  16. NEXIUM [Concomitant]
     Indication: GASTROOESOPHAGEAL REFLUX DISEASE
     Dosage: UNK
     Dates: start: 20060101, end: 20080101
  17. CHANTIX [Suspect]
     Dosage: STARTER PACK AND CONTINUING PACK
     Dates: start: 20071231, end: 20080201
  18. CHANTIX [Suspect]
     Indication: SMOKING CESSATION THERAPY
     Dosage: STARTER PACK AND CONTINUING PACK
     Dates: start: 20070926, end: 20071026
  19. SORIATANE [Concomitant]
     Indication: KERATOSIS FOLLICULAR
     Dosage: UNK
     Dates: start: 20050101
  20. NEURONTIN [Concomitant]

REACTIONS (4)
  - INSOMNIA [None]
  - MENTAL DISORDER [None]
  - ANXIETY [None]
  - HALLUCINATION [None]
